FAERS Safety Report 25515000 (Version 1)
Quarter: 2025Q3

REPORT INFORMATION
  Report Type: Spontaneous
  Country: CA (occurrence: CA)
  Receive Date: 20250703
  Receipt Date: 20250703
  Transmission Date: 20251021
  Serious: Yes (Death, Other)
  Sender: BRISTOL-MYERS SQUIBB COMPANY
  Company Number: CA-BRISTOL-MYERS SQUIBB COMPANY-2025-094344

PATIENT
  Age: 56 Year
  Sex: Female
  Weight: 70 kg

DRUGS (111)
  1. ORENCIA [Suspect]
     Active Substance: ABATACEPT
     Indication: Rheumatoid arthritis
     Route: 058
  2. ORENCIA [Suspect]
     Active Substance: ABATACEPT
     Route: 042
  3. ORENCIA [Suspect]
     Active Substance: ABATACEPT
     Route: 058
  4. ORENCIA [Suspect]
     Active Substance: ABATACEPT
     Route: 058
  5. ORENCIA [Suspect]
     Active Substance: ABATACEPT
     Route: 058
  6. ORENCIA [Suspect]
     Active Substance: ABATACEPT
     Route: 058
  7. ORENCIA [Suspect]
     Active Substance: ABATACEPT
     Route: 058
  8. ORENCIA [Suspect]
     Active Substance: ABATACEPT
     Route: 058
  9. ORENCIA [Suspect]
     Active Substance: ABATACEPT
     Route: 058
  10. ORENCIA [Suspect]
     Active Substance: ABATACEPT
     Route: 058
  11. ORENCIA [Suspect]
     Active Substance: ABATACEPT
     Route: 058
  12. ORENCIA [Suspect]
     Active Substance: ABATACEPT
     Route: 058
  13. ORENCIA [Suspect]
     Active Substance: ABATACEPT
  14. ACTEMRA [Concomitant]
     Active Substance: TOCILIZUMAB
     Indication: Rheumatoid arthritis
  15. ARAVA [Concomitant]
     Active Substance: LEFLUNOMIDE
     Indication: Rheumatoid arthritis
     Route: 048
  16. CETIRIZINE HYDROCHLORIDE [Concomitant]
     Active Substance: CETIRIZINE HYDROCHLORIDE
     Indication: Rheumatoid arthritis
     Route: 048
  17. CETIRIZINE HYDROCHLORIDE [Concomitant]
     Active Substance: CETIRIZINE HYDROCHLORIDE
  18. CETIRIZINE HYDROCHLORIDE [Concomitant]
     Active Substance: CETIRIZINE HYDROCHLORIDE
  19. CETIRIZINE HYDROCHLORIDE [Concomitant]
     Active Substance: CETIRIZINE HYDROCHLORIDE
     Route: 048
  20. CETIRIZINE HYDROCHLORIDE [Concomitant]
     Active Substance: CETIRIZINE HYDROCHLORIDE
  21. CIMZIA [Concomitant]
     Active Substance: CERTOLIZUMAB PEGOL
     Indication: Rheumatoid arthritis
     Route: 058
  22. CIMZIA [Concomitant]
     Active Substance: CERTOLIZUMAB PEGOL
     Route: 058
  23. CORTISONE ACETATE [Concomitant]
     Active Substance: CORTISONE ACETATE
     Indication: Product used for unknown indication
     Route: 061
  24. CORTISONE ACETATE [Concomitant]
     Active Substance: CORTISONE ACETATE
     Route: 058
  25. COSENTYX [Concomitant]
     Active Substance: SECUKINUMAB
     Indication: Psoriatic arthropathy
  26. DICLOFENAC [Concomitant]
     Active Substance: DICLOFENAC
     Indication: Product used for unknown indication
  27. ENBREL [Concomitant]
     Active Substance: ETANERCEPT
     Indication: Rheumatoid arthritis
     Route: 058
  28. ENBREL [Concomitant]
     Active Substance: ETANERCEPT
     Route: 058
  29. ENBREL [Concomitant]
     Active Substance: ETANERCEPT
     Route: 058
  30. ENBREL [Concomitant]
     Active Substance: ETANERCEPT
     Route: 058
  31. FOLIC ACID [Concomitant]
     Active Substance: FOLIC ACID
     Indication: Rheumatoid arthritis
  32. FOLIC ACID [Concomitant]
     Active Substance: FOLIC ACID
  33. FOLIC ACID [Concomitant]
     Active Substance: FOLIC ACID
  34. FOLIC ACID [Concomitant]
     Active Substance: FOLIC ACID
  35. FOSAMAX [Concomitant]
     Active Substance: ALENDRONATE SODIUM
     Indication: Rheumatoid arthritis
     Route: 058
  36. FOSAMAX [Concomitant]
     Active Substance: ALENDRONATE SODIUM
  37. HUMIRA [Concomitant]
     Active Substance: ADALIMUMAB
     Indication: Rheumatoid arthritis
     Route: 058
  38. HUMIRA [Concomitant]
     Active Substance: ADALIMUMAB
     Route: 058
  39. HUMIRA [Concomitant]
     Active Substance: ADALIMUMAB
     Route: 058
  40. HUMIRA [Concomitant]
     Active Substance: ADALIMUMAB
  41. HYDROXYCHLOROQUINE SULFATE [Concomitant]
     Active Substance: HYDROXYCHLOROQUINE SULFATE
     Indication: Rheumatoid arthritis
  42. HYDROXYCHLOROQUINE SULFATE [Concomitant]
     Active Substance: HYDROXYCHLOROQUINE SULFATE
  43. HYDROXYCHLOROQUINE SULFATE [Concomitant]
     Active Substance: HYDROXYCHLOROQUINE SULFATE
  44. LEFLUNOMIDE [Concomitant]
     Active Substance: LEFLUNOMIDE
     Indication: Rheumatoid arthritis
  45. METHOTREXATE [Concomitant]
     Active Substance: METHOTREXATE
     Indication: Rheumatoid arthritis
     Route: 058
  46. METHOTREXATE [Concomitant]
     Active Substance: METHOTREXATE
  47. METHOTREXATE [Concomitant]
     Active Substance: METHOTREXATE
     Route: 058
  48. METHOTREXATE [Concomitant]
     Active Substance: METHOTREXATE
  49. METHOTREXATE [Concomitant]
     Active Substance: METHOTREXATE
     Route: 048
  50. METHOTREXATE [Concomitant]
     Active Substance: METHOTREXATE
     Route: 048
  51. METHOTREXATE [Concomitant]
     Active Substance: METHOTREXATE
     Route: 058
  52. METHOTREXATE [Concomitant]
     Active Substance: METHOTREXATE
     Route: 048
  53. METHOTREXATE [Concomitant]
     Active Substance: METHOTREXATE
     Route: 048
  54. PHTHALYLSULFATHIAZOLE [Concomitant]
     Active Substance: PHTHALYLSULFATHIAZOLE
     Indication: Product used for unknown indication
     Route: 048
  55. PHTHALYLSULFATHIAZOLE [Concomitant]
     Active Substance: PHTHALYLSULFATHIAZOLE
     Route: 048
  56. PHTHALYLSULFATHIAZOLE [Concomitant]
     Active Substance: PHTHALYLSULFATHIAZOLE
  57. PHTHALYLSULFATHIAZOLE [Concomitant]
     Active Substance: PHTHALYLSULFATHIAZOLE
     Route: 048
  58. PHTHALYLSULFATHIAZOLE [Concomitant]
     Active Substance: PHTHALYLSULFATHIAZOLE
     Route: 058
  59. PHTHALYLSULFATHIAZOLE [Concomitant]
     Active Substance: PHTHALYLSULFATHIAZOLE
     Route: 016
  60. PREDNISONE [Concomitant]
     Active Substance: PREDNISONE
     Indication: Rheumatoid arthritis
     Route: 042
  61. PREDNISONE [Concomitant]
     Active Substance: PREDNISONE
     Route: 048
  62. PREDNISONE [Concomitant]
     Active Substance: PREDNISONE
     Route: 048
  63. PREDNISONE [Concomitant]
     Active Substance: PREDNISONE
     Route: 048
  64. PREDNISONE [Concomitant]
     Active Substance: PREDNISONE
     Route: 048
  65. PREDNISONE [Concomitant]
     Active Substance: PREDNISONE
     Route: 048
  66. PSEUDOEPHEDRINE HYDROCHLORIDE [Concomitant]
     Active Substance: PSEUDOEPHEDRINE HYDROCHLORIDE
     Indication: Rheumatoid arthritis
  67. REMICADE [Concomitant]
     Active Substance: INFLIXIMAB
     Indication: Rheumatoid arthritis
     Route: 042
  68. REMICADE [Concomitant]
     Active Substance: INFLIXIMAB
     Route: 042
  69. REMICADE [Concomitant]
     Active Substance: INFLIXIMAB
     Route: 042
  70. REMICADE [Concomitant]
     Active Substance: INFLIXIMAB
     Route: 042
  71. REMICADE [Concomitant]
     Active Substance: INFLIXIMAB
     Route: 040
  72. RITUXIMAB [Concomitant]
     Active Substance: RITUXIMAB
     Indication: Rheumatoid arthritis
     Route: 041
  73. RITUXIMAB [Concomitant]
     Active Substance: RITUXIMAB
     Route: 042
  74. RITUXIMAB [Concomitant]
     Active Substance: RITUXIMAB
  75. SIMPONI [Concomitant]
     Active Substance: GOLIMUMAB
     Indication: Rheumatoid arthritis
     Route: 058
  76. SIMPONI [Concomitant]
     Active Substance: GOLIMUMAB
  77. SULFASALAZINE [Concomitant]
     Active Substance: SULFASALAZINE
     Indication: Rheumatoid arthritis
     Route: 058
  78. SULFASALAZINE [Concomitant]
     Active Substance: SULFASALAZINE
     Route: 058
  79. SULFASALAZINE [Concomitant]
     Active Substance: SULFASALAZINE
     Route: 048
  80. SULFASALAZINE [Concomitant]
     Active Substance: SULFASALAZINE
     Route: 058
  81. SULFASALAZINE [Concomitant]
     Active Substance: SULFASALAZINE
     Route: 058
  82. SULFASALAZINE [Concomitant]
     Active Substance: SULFASALAZINE
     Route: 058
  83. SULFASALAZINE [Concomitant]
     Active Substance: SULFASALAZINE
     Route: 048
  84. SULFASALAZINE [Concomitant]
     Active Substance: SULFASALAZINE
     Route: 058
  85. SULFASALAZINE [Concomitant]
     Active Substance: SULFASALAZINE
  86. NAPROXEN [Concomitant]
     Active Substance: NAPROXEN
     Indication: Rheumatoid arthritis
  87. NAPROXEN [Concomitant]
     Active Substance: NAPROXEN
  88. ADALIMUMAB [Concomitant]
     Active Substance: ADALIMUMAB
     Indication: Product used for unknown indication
     Route: 040
  89. ADALIMUMAB [Concomitant]
     Active Substance: ADALIMUMAB
     Route: 048
  90. PREDNISONE [Concomitant]
     Active Substance: PREDNISONE
     Indication: Rheumatoid arthritis
  91. DESOXIMETASONE [Concomitant]
     Active Substance: DESOXIMETASONE
     Indication: Rheumatoid arthritis
     Route: 048
  92. ERELZI [Concomitant]
     Active Substance: ETANERCEPT-SZZS
     Indication: Product used for unknown indication
     Route: 058
  93. SULFASALAZINE [Concomitant]
     Active Substance: SULFASALAZINE
     Indication: Product used for unknown indication
  94. TOCILIZUMAB [Concomitant]
     Active Substance: TOCILIZUMAB
     Indication: Product used for unknown indication
  95. TOCILIZUMAB [Concomitant]
     Active Substance: TOCILIZUMAB
     Route: 048
  96. ALENDRONATE SODIUM [Concomitant]
     Active Substance: ALENDRONATE SODIUM
     Indication: Rheumatoid arthritis
  97. CALCIUM [Concomitant]
     Active Substance: CALCIUM
     Indication: Product used for unknown indication
  98. CALCIUM GLUCONATE [Concomitant]
     Active Substance: CALCIUM GLUCONATE
     Indication: Product used for unknown indication
  99. CELECOXIB [Concomitant]
     Active Substance: CELECOXIB
     Indication: Rheumatoid arthritis
     Route: 058
  100. CELECOXIB [Concomitant]
     Active Substance: CELECOXIB
  101. CELECOXIB [Concomitant]
     Active Substance: CELECOXIB
  102. CELECOXIB [Concomitant]
     Active Substance: CELECOXIB
     Route: 048
  103. LEVOCETIRIZINE HYDROCHLORIDE [Concomitant]
     Active Substance: LEVOCETIRIZINE HYDROCHLORIDE
     Indication: Product used for unknown indication
  104. PANTOPRAZOLE [Concomitant]
     Active Substance: PANTOPRAZOLE
     Indication: Product used for unknown indication
  105. TOFACITINIB [Concomitant]
     Active Substance: TOFACITINIB
     Indication: Product used for unknown indication
  106. TOFACITINIB CITRATE [Concomitant]
     Active Substance: TOFACITINIB CITRATE
     Indication: Product used for unknown indication
     Route: 048
  107. TOFACITINIB CITRATE [Concomitant]
     Active Substance: TOFACITINIB CITRATE
  108. DOXYCYCLINE HYCLATE [Concomitant]
     Active Substance: DOXYCYCLINE HYCLATE
     Indication: Product used for unknown indication
  109. HYDROCORTISONE SODIUM SUCCINATE [Concomitant]
     Active Substance: HYDROCORTISONE SODIUM SUCCINATE
     Indication: Product used for unknown indication
     Route: 058
  110. HYDROCORTISONE SODIUM SUCCINATE [Concomitant]
     Active Substance: HYDROCORTISONE SODIUM SUCCINATE
     Route: 048
  111. METHYLPREDNISOLONE SODIUM SUCCINATE [Concomitant]
     Active Substance: METHYLPREDNISOLONE SODIUM SUCCINATE
     Indication: Product used for unknown indication
     Route: 048

REACTIONS (1)
  - Death [Fatal]
